FAERS Safety Report 14487951 (Version 1)
Quarter: 2018Q1

REPORT INFORMATION
  Report Type: Spontaneous
  Country: US (occurrence: US)
  Receive Date: 20180205
  Receipt Date: 20180205
  Transmission Date: 20180509
  Serious: Yes (Other)
  Sender: FDA-Public Use
  Company Number: US-TEVA-2018-US-855126

PATIENT
  Sex: Female

DRUGS (6)
  1. IMITREX [Concomitant]
     Active Substance: SUMATRIPTAN SUCCINATE
     Route: 065
  2. KLONOPIN [Concomitant]
     Active Substance: CLONAZEPAM
     Indication: PANIC ATTACK
     Route: 065
  3. TEVA-CLOZAPINE [Suspect]
     Active Substance: CLOZAPINE
     Indication: SCHIZOPHRENIA
     Dates: start: 2012, end: 201702
  4. CLOZARIL [Suspect]
     Active Substance: CLOZAPINE
     Indication: SCHIZOPHRENIA
     Route: 065
     Dates: start: 199703
  5. TRAZODONE [Concomitant]
     Active Substance: TRAZODONE HYDROCHLORIDE
     Route: 065
  6. VENLAFAXINE [Concomitant]
     Active Substance: VENLAFAXINE HYDROCHLORIDE
     Indication: SCHIZOPHRENIA
     Route: 065

REACTIONS (18)
  - Gastrointestinal disorder [Unknown]
  - Renal impairment [Unknown]
  - Drooling [Recovered/Resolved]
  - Dry mouth [Not Recovered/Not Resolved]
  - Immunodeficiency [Unknown]
  - Weight increased [Recovered/Resolved]
  - Dental caries [Unknown]
  - Diabetes mellitus [Unknown]
  - Constipation [Unknown]
  - Incontinence [Recovered/Resolved]
  - Diarrhoea [Unknown]
  - Dry eye [Unknown]
  - Tooth loss [Unknown]
  - Splenomegaly [Unknown]
  - Hyperhidrosis [Unknown]
  - Idiopathic intracranial hypertension [Unknown]
  - Salivary gland atrophy [Unknown]
  - Vomiting projectile [Unknown]

NARRATIVE: CASE EVENT DATE: 2012
